FAERS Safety Report 6409841-2 (Version None)
Quarter: 2009Q4

REPORT INFORMATION
  Report Type: 
  Country: None (occurrence: None)
  Receive Date: 20091022
  Receipt Date: 20091013
  Transmission Date: 20100525
  Serious: Yes (Disabling)
  Sender: FDA-Public Use
  Company Number: JP-ABBOTT-09P-087-0603113-00

PATIENT
  Age: 55 Year
  Sex: Male

DRUGS (7)
  1. SEVOFRANE [Suspect]
     Indication: MAINTENANCE OF ANAESTHESIA
     Route: 055
  2. PROPOFOL [Concomitant]
     Indication: INDUCTION OF ANAESTHESIA
     Route: 042
  3. FENTANYL-100 [Concomitant]
     Indication: INDUCTION OF ANAESTHESIA
  4. FENTANYL-100 [Concomitant]
  5. ROCURONIUM BROMIDE [Concomitant]
     Indication: INDUCTION OF ANAESTHESIA
  6. OXYGEN [Concomitant]
     Indication: MAINTENANCE OF ANAESTHESIA
     Route: 055
  7. REMIFENTANIL [Concomitant]
     Indication: DRUG USE FOR UNKNOWN INDICATION

REACTIONS (1)
  - NERVOUS SYSTEM DISORDER [None]
